FAERS Safety Report 7971043-6 (Version None)
Quarter: 2011Q4

REPORT INFORMATION
  Report Type: 
  Country: None (occurrence: None)
  Receive Date: 20111212
  Receipt Date: 20111212
  Transmission Date: 20120403
  Serious: No
  Sender: FDA-Public Use
  Company Number: None

PATIENT
  Age: 50 Year
  Sex: Male
  Weight: 80.739 kg

DRUGS (2)
  1. FENTANYL-100 [Suspect]
     Indication: PAIN
     Dosage: 75 MCG/HR
     Route: 062
  2. OTHER BRANDS USED HAVE THE SAME [Concomitant]

REACTIONS (1)
  - INADEQUATE ANALGESIA [None]
